FAERS Safety Report 9786980 (Version 2)
Quarter: 2014Q1

REPORT INFORMATION
  Report Type: Spontaneous
  Country: US (occurrence: US)
  Receive Date: 20131227
  Receipt Date: 20140205
  Transmission Date: 20141002
  Serious: Yes (Other)
  Sender: FDA-Public Use
  Company Number: CHPA2013US018788

PATIENT
  Age: 46 Year
  Sex: Female

DRUGS (2)
  1. EXCEDRIN MIGRAINE [Suspect]
     Indication: MIGRAINE
     Dosage: 2 DF, PRN
     Route: 048
  2. EXCEDRIN MIGRAINE [Suspect]
     Dosage: 2 DF, EVERY 4 TO 6 HOURS, PRN
     Route: 048

REACTIONS (4)
  - Sinusitis [Not Recovered/Not Resolved]
  - Feeling abnormal [Not Recovered/Not Resolved]
  - Vomiting [Recovered/Resolved]
  - Inappropriate schedule of drug administration [Unknown]
